APPROVED DRUG PRODUCT: IPRATROPIUM BROMIDE
Active Ingredient: IPRATROPIUM BROMIDE
Strength: 0.042MG/SPRAY
Dosage Form/Route: SPRAY, METERED;NASAL
Application: A076598 | Product #001 | TE Code: AB
Applicant: HIKMA PHARMACEUTICALS USA INC
Approved: Nov 5, 2003 | RLD: No | RS: Yes | Type: RX